FAERS Safety Report 4791722-1 (Version None)
Quarter: 2005Q4

REPORT INFORMATION
  Report Type: 
  Country: None (occurrence: None)
  Receive Date: 20051007
  Receipt Date: 20050929
  Transmission Date: 20060501
  Serious: Yes (Death)
  Sender: FDA-Public Use
  Company Number: US-KINGPHARMUSA00001-K200501291

PATIENT
  Age: 35 Year

DRUGS (3)
  1. SKELAXIN [Suspect]
     Route: 048
  2. BUPROPION [Suspect]
     Route: 048
  3. ACETAMINOPHEN [Suspect]
     Route: 048

REACTIONS (3)
  - ANALGESIC DRUG LEVEL INCREASED [None]
  - COMPLETED SUICIDE [None]
  - OVERDOSE [None]
